FAERS Safety Report 11845661 (Version 1)
Quarter: 2015Q4

REPORT INFORMATION
  Report Type: Spontaneous
  Country: FR (occurrence: FR)
  Receive Date: 20151217
  Receipt Date: 20151217
  Transmission Date: 20160305
  Serious: Yes (Hospitalization)
  Sender: FDA-Public Use
  Company Number: FR-B.I. PHARMACEUTICALS,INC./RIDGEFIELD-2015-BI-69722FF

PATIENT
  Age: 78 Year
  Sex: Male

DRUGS (1)
  1. PRADAXA [Suspect]
     Active Substance: DABIGATRAN ETEXILATE MESYLATE
     Indication: ATRIAL FIBRILLATION
     Dosage: 220 MG
     Route: 048

REACTIONS (6)
  - Acute kidney injury [Unknown]
  - Faeces discoloured [Unknown]
  - Abdominal pain [Unknown]
  - Red blood cell count decreased [Not Recovered/Not Resolved]
  - Epistaxis [Unknown]
  - Malaise [Unknown]

NARRATIVE: CASE EVENT DATE: 201512
